FAERS Safety Report 10211934 (Version 1)
Quarter: 2014Q2

REPORT INFORMATION
  Report Type: Spontaneous
  Country: US (occurrence: US)
  Receive Date: 20140602
  Receipt Date: 20140602
  Transmission Date: 20141212
  Serious: No
  Sender: FDA-Public Use
  Company Number: US-AMGEN-USASP2014033416

PATIENT
  Age: 57 Year
  Sex: Female

DRUGS (2)
  1. ENBREL [Suspect]
     Indication: PSORIATIC ARTHROPATHY
     Dosage: UNK
     Route: 065
     Dates: start: 20130201
  2. ENBREL [Suspect]

REACTIONS (4)
  - Fatigue [Recovered/Resolved]
  - Erythema [Recovered/Resolved]
  - Incorrect route of drug administration [Recovered/Resolved]
  - Pain in extremity [Recovered/Resolved]
